FAERS Safety Report 5455135-1 (Version None)
Quarter: 2007Q3

REPORT INFORMATION
  Report Type: 
  Country: None (occurrence: None)
  Receive Date: 20070914
  Receipt Date: 20070906
  Transmission Date: 20080115
  Serious: Yes (Hospitalization, Other)
  Sender: FDA-Public Use
  Company Number: 2007BI018851

PATIENT
  Age: 44 Year
  Sex: Female
  Weight: 71 kg

DRUGS (3)
  1. AVONEX [Suspect]
     Indication: MULTIPLE SCLEROSIS
     Dosage: 30 UG; QW; IM
     Route: 030
     Dates: start: 20050711
  2. RAMIPRIL [Concomitant]
  3. AMLODIPINE [Concomitant]

REACTIONS (9)
  - ABDOMINAL NEOPLASM [None]
  - ALANINE AMINOTRANSFERASE INCREASED [None]
  - ASPARTATE AMINOTRANSFERASE INCREASED [None]
  - GAMMA-GLUTAMYLTRANSFERASE INCREASED [None]
  - HEPATOMEGALY [None]
  - OVARIAN CANCER [None]
  - OVARIAN CYST [None]
  - UTERINE NEOPLASM [None]
  - UTERINE PROLAPSE [None]
